FAERS Safety Report 24875622 (Version 2)
Quarter: 2025Q1

REPORT INFORMATION
  Report Type: Spontaneous
  Country: CA (occurrence: CA)
  Receive Date: 20250122
  Receipt Date: 20250224
  Transmission Date: 20250409
  Serious: Yes (Hospitalization)
  Sender: Day One Biopharmaceuticals
  Company Number: CA-IPSEN Group, Research and Development-2025-00994

PATIENT

DRUGS (5)
  1. OJEMDA [Suspect]
     Active Substance: TOVORAFENIB
     Indication: Glioma
     Dosage: 600 MILLIGRAM
     Route: 048
     Dates: start: 20240322, end: 20250107
  2. OJEMDA [Suspect]
     Active Substance: TOVORAFENIB
     Indication: Neoplasm
  3. KEPPRA [Concomitant]
     Active Substance: LEVETIRACETAM
     Indication: Epilepsy
     Dosage: 1500 MILLIGRAM
     Route: 048
     Dates: start: 20240226
  4. FUCIDIN + DERMOVATE [Concomitant]
     Indication: Paronychia
     Route: 048
     Dates: start: 20241030
  5. POLYETHYLENE GLYCOL 3350 [Concomitant]
     Active Substance: POLYETHYLENE GLYCOL 3350

REACTIONS (7)
  - Device related infection [Not Recovered/Not Resolved]
  - Cutibacterium acnes infection [Unknown]
  - Amnesia [Unknown]
  - Headache [Unknown]
  - Acne [Unknown]
  - Psychomotor retardation [Unknown]
  - Device occlusion [Unknown]

NARRATIVE: CASE EVENT DATE: 20241230
